FAERS Safety Report 18148116 (Version 2)
Quarter: 2020Q4

REPORT INFORMATION
  Report Type: Spontaneous
  Country: US (occurrence: US)
  Receive Date: 20200813
  Receipt Date: 20201015
  Transmission Date: 20210113
  Serious: No
  Sender: FDA-Public Use
  Company Number: NVSC2020US224732

PATIENT
  Sex: Male

DRUGS (1)
  1. ILEVRO [Suspect]
     Active Substance: NEPAFENAC
     Indication: PRODUCT USED FOR UNKNOWN INDICATION
     Dosage: 1 DRP, QD
     Route: 065

REACTIONS (1)
  - Product dose omission issue [Unknown]
